FAERS Safety Report 5761230-X (Version None)
Quarter: 2008Q2

REPORT INFORMATION
  Report Type: 
  Country: None (occurrence: None)
  Receive Date: 20080606
  Receipt Date: 20080603
  Transmission Date: 20081010
  Serious: Yes (Life-Threatening)
  Sender: FDA-Public Use
  Company Number: PHHO2008FR07093

PATIENT
  Sex: Male
  Weight: 71 kg

DRUGS (5)
  1. STI571/CGP57148B T35717+TAB [Suspect]
  2. DEXAMETHASONE TAB [Suspect]
     Dosage: UNK
     Route: 048
     Dates: start: 20080502, end: 20080516
  3. METHOTREXATE [Suspect]
  4. CYTARABINE [Suspect]
  5. DEPO-MEDROL [Suspect]

REACTIONS (1)
  - CEREBRAL VENOUS THROMBOSIS [None]
